FAERS Safety Report 5519958-2 (Version None)
Quarter: 2007Q4

REPORT INFORMATION
  Report Type: 
  Country: None (occurrence: None)
  Receive Date: 20071116
  Receipt Date: 20070118
  Transmission Date: 20080405
  Serious: No
  Sender: FDA-Public Use
  Company Number: US-BRISTOL-MYERS SQUIBB COMPANY-13647920

PATIENT
  Age: 64 Year
  Sex: Female
  Weight: 59 kg

DRUGS (5)
  1. QUESTRAN LIGHT [Suspect]
     Indication: DIARRHOEA
     Route: 048
  2. COZAAR [Concomitant]
  3. ESTROGENIC SUBSTANCE [Concomitant]
  4. SELENIUM [Concomitant]
  5. VITAMINS [Concomitant]

REACTIONS (1)
  - DYSGEUSIA [None]
